FAERS Safety Report 7332524-1 (Version None)
Quarter: 2011Q1

REPORT INFORMATION
  Report Type: 
  Country: None (occurrence: None)
  Receive Date: 20110304
  Receipt Date: 20110228
  Transmission Date: 20110831
  Serious: Yes (Other)
  Sender: FDA-Public Use
  Company Number: US-PFIZER INC-2005103308

PATIENT
  Sex: Female

DRUGS (1)
  1. NEURONTIN [Suspect]
     Indication: MIGRAINE
     Dosage: 100 MG, UNK
     Dates: start: 20010801

REACTIONS (10)
  - THINKING ABNORMAL [None]
  - AMNESIA [None]
  - ANGER [None]
  - SUICIDAL IDEATION [None]
  - AGGRESSION [None]
  - DRUG INEFFECTIVE [None]
  - FEELING OF DESPAIR [None]
  - INSOMNIA [None]
  - ABNORMAL BEHAVIOUR [None]
  - HOMICIDAL IDEATION [None]
